FAERS Safety Report 9378392 (Version 1)
Quarter: 2013Q3

REPORT INFORMATION
  Report Type: Spontaneous
  Country: CH (occurrence: CH)
  Receive Date: 20130701
  Receipt Date: 20130701
  Transmission Date: 20140515
  Serious: Yes (Hospitalization)
  Sender: FDA-Public Use
  Company Number: CH-ELI_LILLY_AND_COMPANY-EWC041141287

PATIENT
  Age: 69 Year
  Sex: Male

DRUGS (7)
  1. OLANZAPINE [Suspect]
     Indication: DEPRESSION
     Dosage: 10 MG, DAILY (1/D)
     Route: 048
     Dates: end: 20040822
  2. EDRONAX [Suspect]
     Indication: DEPRESSION
     Dosage: 8 MG, QD
     Dates: start: 20040812
  3. EDRONAX [Suspect]
     Dosage: 1 DF, UNKNOWN
  4. PAROXETINE [Suspect]
     Indication: MENTAL DISORDER
     Dosage: 40 MG, DAILY (1/D)
     Route: 048
     Dates: start: 20040101
  5. XANAX [Concomitant]
     Indication: MENTAL DISORDER
     Dosage: 3 MG, DAILY (1/D)
     Route: 048
     Dates: start: 20040812
  6. GALANTAMINE [Concomitant]
     Indication: DEMENTIA
  7. TRIATEC [Concomitant]
     Indication: HYPERTENSION
     Dosage: 5 MG, DAILY (1/D)
     Route: 048
     Dates: end: 20040901

REACTIONS (2)
  - Hypertension [Recovered/Resolved]
  - Sinus tachycardia [Recovered/Resolved]
